FAERS Safety Report 14403713 (Version 3)
Quarter: 2018Q2

REPORT INFORMATION
  Report Type: Report from Study
  Country: US (occurrence: US)
  Receive Date: 20180117
  Receipt Date: 20180407
  Transmission Date: 20180711
  Serious: Yes (Hospitalization, Other)
  Sender: FDA-Public Use
  Company Number: US-B.I. PHARMACEUTICALS,INC./RIDGEFIELD-2015-BI-15379BI

PATIENT
  Age: 79 Year
  Sex: Male
  Weight: 97 kg

DRUGS (16)
  1. LIPITOR [Concomitant]
     Active Substance: ATORVASTATIN CALCIUM
     Indication: HYPERLIPIDAEMIA
     Dosage: DOSE PER APPLICATION AND DAILY DOSE-80
     Route: 048
     Dates: start: 20110813
  2. METFORMIN [Concomitant]
     Active Substance: METFORMIN HYDROCHLORIDE
     Indication: TYPE 2 DIABETES MELLITUS
     Dosage: DOSE PER APPLICATION AND DAILY DOSE: 2500
     Route: 048
     Dates: start: 20090415
  3. HYDROCHLOROTHIAZIDE. [Concomitant]
     Active Substance: HYDROCHLOROTHIAZIDE
     Indication: OEDEMA
     Dosage: DOSE PER APPLICATION AND DAILY DOSE: 25
     Route: 048
     Dates: start: 20131031
  4. LINAGLIPTIN [Suspect]
     Active Substance: LINAGLIPTIN
     Route: 048
     Dates: start: 20141229, end: 20150417
  5. ASPIRIN. [Concomitant]
     Active Substance: ASPIRIN
     Indication: CORONARY ARTERY DISEASE
     Dosage: DOSE PER APPLICATION AND DAILY DOSE: 81
     Route: 048
     Dates: start: 2009
  6. GLIPIZIDE. [Concomitant]
     Active Substance: GLIPIZIDE
     Indication: TYPE 2 DIABETES MELLITUS
     Dosage: DOSE PER APPLICATION AND DAILY DOSE: 20
     Route: 048
     Dates: start: 201004
  7. NITRO [Concomitant]
     Active Substance: NITROGLYCERIN
     Indication: ANGINA PECTORIS
     Route: 060
     Dates: start: 20110824
  8. CLORAZEPATEDI POTASSIUM [Concomitant]
     Indication: ANXIETY
     Route: 048
     Dates: start: 1999
  9. CLORAZEPATEDI POTASSIUM [Concomitant]
     Route: 048
  10. PROCARDIA [Concomitant]
     Active Substance: NIFEDIPINE
     Indication: HYPERTENSION
     Dosage: DOSE PER APPLICATION AND DAILY DOSE: 90
     Route: 048
     Dates: start: 20110824
  11. LINAGLIPTIN [Suspect]
     Active Substance: LINAGLIPTIN
     Indication: TYPE 2 DIABETES MELLITUS
     Route: 048
     Dates: start: 20141229, end: 20150901
  12. IMDUR [Concomitant]
     Active Substance: ISOSORBIDE MONONITRATE
     Indication: ANGINA PECTORIS
     Dosage: DOSE PER APPLICATION AND DAILY DOSE: 60
     Route: 048
     Dates: start: 20110824
  13. LABETALOL [Concomitant]
     Active Substance: LABETALOL\LABETALOL HYDROCHLORIDE
     Indication: HYPERTENSION
     Dosage: DOSE PER APPLICATION AND DAILY DOSE: 600
     Route: 048
     Dates: start: 20120814
  14. HYDROCHLOROTHIAZIDE. [Concomitant]
     Active Substance: HYDROCHLOROTHIAZIDE
     Indication: HYPERTENSION
  15. LANTUS [Concomitant]
     Active Substance: INSULIN GLARGINE
     Indication: TYPE 2 DIABETES MELLITUS
     Dosage: DOSE PER APPLICATION AND DAILY DOSE: 10
     Route: 058
     Dates: start: 20130419
  16. LISINOPRIL. [Concomitant]
     Active Substance: LISINOPRIL
     Indication: HYPERTENSION
     Dosage: DOSE PER APPLICATION AND DAILY DOSE: 40
     Route: 048
     Dates: start: 20131031

REACTIONS (7)
  - Postoperative ileus [Recovered/Resolved]
  - Squamous cell carcinoma of skin [Recovered/Resolved]
  - Amylase increased [Recovered/Resolved]
  - Ankle fracture [Recovered/Resolved]
  - Hyperlipasaemia [Recovered/Resolved]
  - Squamous cell carcinoma of skin [Recovered/Resolved]
  - Pancreatitis acute [Recovered/Resolved]

NARRATIVE: CASE EVENT DATE: 20150219
